FAERS Safety Report 7174385-X (Version None)
Quarter: 2010Q4

REPORT INFORMATION
  Report Type: 
  Country: None (occurrence: None)
  Receive Date: 20101219
  Receipt Date: 20100326
  Transmission Date: 20110411
  Serious: No
  Sender: FDA-Public Use
  Company Number: US-AMGEN-KDL402182

PATIENT

DRUGS (4)
  1. ENBREL [Suspect]
     Indication: PRODUCT USED FOR UNKNOWN INDICATION
     Dosage: 50 MG, QWK
     Route: 058
  2. CLONAZEPAM [Concomitant]
     Dosage: 1 MG, UNK
  3. ASPIRIN [Concomitant]
     Dosage: 325 MG, UNK
  4. ERGOCALCIFEROL [Concomitant]
     Dosage: 50000 IU, UNK

REACTIONS (2)
  - MADAROSIS [None]
  - WEIGHT INCREASED [None]
